FAERS Safety Report 6023371-1 (Version None)
Quarter: 2008Q4

REPORT INFORMATION
  Report Type: 
  Country: None (occurrence: None)
  Receive Date: 20081230
  Receipt Date: 20081212
  Transmission Date: 20090506
  Serious: Yes (Death)
  Sender: FDA-Public Use
  Company Number: CH-ROCHE-603175

PATIENT
  Age: 81 Year
  Sex: Male

DRUGS (11)
  1. ROCEPHIN [Interacting]
     Indication: DRUG USE FOR UNKNOWN INDICATION
     Dosage: ROUTE: INTRAVENOUS DRIP
     Route: 042
     Dates: start: 20081002, end: 20081009
  2. SINTROM [Interacting]
     Indication: DRUG USE FOR UNKNOWN INDICATION
     Route: 048
     Dates: start: 20020301, end: 20081012
  3. HALDOL [Suspect]
     Indication: DRUG USE FOR UNKNOWN INDICATION
     Route: 065
     Dates: end: 20081010
  4. AVELOX [Interacting]
     Indication: DRUG USE FOR UNKNOWN INDICATION
     Route: 065
     Dates: start: 20080930, end: 20081002
  5. SOLU-MEDROL [Concomitant]
     Route: 042
     Dates: start: 20081002, end: 20081007
  6. DOSPIR [Concomitant]
     Route: 055
     Dates: start: 20081002, end: 20081007
  7. SINTROM [Concomitant]
  8. ELTROXIN [Concomitant]
  9. TEMESTA [Concomitant]
  10. SERETIDE [Concomitant]
  11. COZAAR [Concomitant]

REACTIONS (4)
  - CONFUSIONAL STATE [None]
  - DRUG INTERACTION [None]
  - INTERNATIONAL NORMALISED RATIO INCREASED [None]
  - SOMNOLENCE [None]
